FAERS Safety Report 7409340-5 (Version None)
Quarter: 2011Q2

REPORT INFORMATION
  Report Type: 
  Country: None (occurrence: None)
  Receive Date: 20110404
  Receipt Date: 20110328
  Transmission Date: 20111010
  Serious: Yes (Other)
  Sender: FDA-Public Use
  Company Number: 873791

PATIENT
  Age: 43 Year
  Sex: Male
  Weight: 70 kg

DRUGS (4)
  1. (REMIFENTANIL) [Suspect]
     Indication: ANAESTHESIA
     Dosage: 0.1-0.2 MCG/KG/MIN, INTRAVENOUS
     Route: 041
  2. PROPOFOL [Suspect]
     Indication: ANAESTHESIA
     Dosage: 50-75 MCG/KG/MIN, INTRAVENOUS
     Route: 041
  3. SEVOFLURANE [Concomitant]
  4. LACTATED RINGER'S [Concomitant]

REACTIONS (2)
  - EXTRAVASATION [None]
  - COMPARTMENT SYNDROME [None]
